FAERS Safety Report 4457274-0 (Version None)
Quarter: 2004Q3

REPORT INFORMATION
  Report Type: 
  Country: None (occurrence: None)
  Receive Date: 20040923
  Receipt Date: 20040913
  Transmission Date: 20050211
  Serious: Yes (Other)
  Sender: FDA-Public Use
  Company Number: ESWYE037614SEP04

PATIENT
  Age: 59 Year
  Sex: Male
  Weight: 68 kg

DRUGS (7)
  1. ENBREL [Suspect]
     Indication: RHEUMATOID ARTHRITIS
     Route: 058
     Dates: start: 20040330, end: 20040520
  2. INDAPAMIDE [Suspect]
     Route: 048
     Dates: start: 20040330, end: 20040520
  3. FOSAMAX [Concomitant]
     Route: 048
     Dates: start: 20020731
  4. CALCIUM CARBONATE [Concomitant]
     Route: 048
     Dates: start: 20020731
  5. VOLTAREN [Concomitant]
     Route: 048
     Dates: start: 20020731
  6. OMEPRAZOLE [Concomitant]
     Route: 048
     Dates: start: 20020731
  7. PREDNISONE [Concomitant]
     Route: 048
     Dates: start: 20011022

REACTIONS (1)
  - ERYTHEMA MULTIFORME [None]
